FAERS Safety Report 10447684 (Version 1)
Quarter: 2014Q1

REPORT INFORMATION
  Report Type: Spontaneous
  Country: US (occurrence: None)
  Receive Date: 20140306
  Receipt Date: 20140306
  Transmission Date: 20141002
  Serious: Yes (Life-Threatening, Hospitalization, Other)
  Sender: FDA-Public Use
  Company Number: 163-21880-13072305

PATIENT
  Age: 73 Year
  Sex: Male

DRUGS (1)
  1. REVLIMID(LENALIDOMIDE)(10 MILLIGRAM, CAPSULES) [Suspect]
     Indication: PLASMA CELL MYELOMA
     Dosage: 28 IN 28 D
     Route: 048
     Dates: start: 20130215, end: 20130619

REACTIONS (5)
  - Pneumonia [None]
  - Dyspepsia [None]
  - Diarrhoea [None]
  - Respiratory tract infection [None]
  - White blood cell count decreased [None]
